FAERS Safety Report 5766915-7 (Version None)
Quarter: 2008Q2

REPORT INFORMATION
  Report Type: 
  Country: None (occurrence: None)
  Receive Date: 20080606
  Receipt Date: 20080522
  Transmission Date: 20081010
  Serious: Yes (Hospitalization)
  Sender: FDA-Public Use
  Company Number: MK-6029780

PATIENT
  Age: 54 Year
  Sex: Female

DRUGS (5)
  1. WARFARIN SODIUM [Suspect]
     Indication: PULMONARY HYPERTENSION
     Dosage: 2 MG; ORAL
     Route: 048
     Dates: start: 20061226, end: 20061229
  2. SITAXSENTAN (SITAXENTAN) [Suspect]
     Indication: PULMONARY HYPERTENSION
     Dosage: 100 MG; ORAL; DAILY
     Route: 048
     Dates: start: 20061226, end: 20061227
  3. PRAVASTATIN [Concomitant]
  4. SELENIUM (SELENIUM) [Concomitant]
  5. VITAMIN B CONCENTRATES [Concomitant]

REACTIONS (5)
  - CHEST PAIN [None]
  - HAEMOPTYSIS [None]
  - MYOCARDIAL INFARCTION [None]
  - NAUSEA [None]
  - VOMITING [None]
